FAERS Safety Report 9720031 (Version 1)
Quarter: 2013Q4

REPORT INFORMATION
  Report Type: Spontaneous
  Country: GB (occurrence: GB)
  Receive Date: 20131128
  Receipt Date: 20131128
  Transmission Date: 20140711
  Serious: Yes (Other)
  Sender: FDA-Public Use
  Company Number: GB-SA-2013SA112554

PATIENT
  Age: 65 Year
  Sex: Male
  Weight: 88 kg

DRUGS (6)
  1. CLOPIDOGREL BISULFATE [Suspect]
     Indication: PROPHYLAXIS
     Route: 048
     Dates: start: 20130901, end: 20130930
  2. GLICLAZIDE [Concomitant]
  3. SIMVASTATIN [Concomitant]
  4. BENDROFLUMETHIAZIDE [Concomitant]
  5. LISINOPRIL [Concomitant]
  6. METFORMIN HYDROCHLORIDE [Concomitant]

REACTIONS (2)
  - Throat irritation [Recovered/Resolved]
  - Product coating issue [Recovered/Resolved]
